FAERS Safety Report 23567174 (Version 1)
Quarter: 2024Q1

REPORT INFORMATION
  Report Type: Spontaneous
  Country: CA (occurrence: CA)
  Receive Date: 20240226
  Receipt Date: 20240226
  Transmission Date: 20240410
  Serious: Yes (Hospitalization)
  Sender: FDA-Public Use
  Company Number: CA-PFIZER INC-202400049384

PATIENT
  Age: 24 Year
  Sex: Male

DRUGS (4)
  1. RITUXIMAB [Suspect]
     Active Substance: RITUXIMAB
     Dosage: UNK, (RITUXIMAB DOSE IN HOSPITAL ON 01FEB2024)
     Route: 042
     Dates: start: 201901, end: 20240201
  2. MIDAMOR [Concomitant]
     Active Substance: AMILORIDE HYDROCHLORIDE
     Dosage: 1 DF  (IN HOSPITAL  5MG 1 TAB)
     Route: 048
  3. PREDNISONE [Concomitant]
     Active Substance: PREDNISONE
     Dosage: 8 DF, 1X/DAY (40 MG)
     Route: 048
     Dates: start: 202401
  4. SULFATRIM [Concomitant]
     Active Substance: SULFAMETHOXAZOLE\TRIMETHOPRIM
     Dosage: 1 DF, 1X/DAY (EVERY MON, WED, FRID)
     Route: 048

REACTIONS (1)
  - Renal disorder [Unknown]
